FAERS Safety Report 5286020-6 (Version None)
Quarter: 2007Q2

REPORT INFORMATION
  Report Type: 
  Country: None (occurrence: None)
  Receive Date: 20070404
  Receipt Date: 20070320
  Transmission Date: 20071010
  Serious: Yes (Other)
  Sender: FDA-Public Use
  Company Number: CA-AMGEN-US185114

PATIENT
  Sex: Male

DRUGS (6)
  1. ENBREL [Suspect]
     Indication: PSORIATIC ARTHROPATHY
     Route: 058
     Dates: start: 20020101, end: 20060618
  2. CELEBREX [Concomitant]
     Route: 065
  3. FOLIC ACID [Concomitant]
     Route: 065
  4. OXYCONTIN [Concomitant]
     Route: 065
  5. GABAPENTIN [Concomitant]
     Route: 048
  6. PERCOCET [Concomitant]
     Route: 065

REACTIONS (13)
  - DEMYELINATION [None]
  - ERECTILE DYSFUNCTION [None]
  - FACET JOINT SYNDROME [None]
  - INTERVERTEBRAL DISC COMPRESSION [None]
  - INTERVERTEBRAL DISC DEGENERATION [None]
  - INTERVERTEBRAL DISC PROTRUSION [None]
  - MULTIPLE SCLEROSIS [None]
  - MYELITIS [None]
  - MYELOPATHY [None]
  - PSORIATIC ARTHROPATHY [None]
  - SCIATICA [None]
  - SPINAL COLUMN STENOSIS [None]
  - VASCULITIS [None]
